FAERS Safety Report 9507975 (Version 1)
Quarter: 2013Q1

REPORT INFORMATION
  Report Type: Spontaneous
  Country: US (occurrence: None)
  Receive Date: 20130305
  Receipt Date: 20130305
  Transmission Date: 20140127
  Serious: Yes (Hospitalization)
  Sender: FDA-Public Use
  Company Number: 163-21880-12051913

PATIENT
  Age: 69 Year
  Sex: Female

DRUGS (14)
  1. REVLIMID [Suspect]
     Indication: PLASMA CELL MYELOMA
     Dosage: 15 MG, 28 IN 28 D, PO
     Route: 048
     Dates: start: 20090127
  2. ALLOPURINOL (ALLOPURINOL) (TABLETS) [Concomitant]
  3. ALPRAZOLAM (ALPRAZOLAM) (TABLETS) [Concomitant]
  4. AMITRIPTYLINE-CHLORDIAZEPOXIDE (LIMBITROL) (TABLETS) [Concomitant]
  5. VITAMIN D3 (COLECALCIFEROL) (CAPSULES) [Concomitant]
  6. DICLOFENAC SODIUM (DICLOFENAC SODIUM) (TABLETS) [Concomitant]
  7. ESCITALOPRAM (ESCITALOPRAM) (TABLETS) [Concomitant]
  8. VYTORIN (INEGY) (TABLETS) [Concomitant]
  9. ADVAIR DISKUS (SERETIDE MITE) (UNKNOWN) [Concomitant]
  10. MAGNESIUM OXIDE (MAGNESIUM OXIDE) (TABLETS) [Concomitant]
  11. OXYCODONE (OXYCODONE) (TABLETS) [Concomitant]
  12. PRIMIDONE (PRIIDONE) (TABLETS) [Concomitant]
  13. WARFARIN (WARFARIN) (TABLETS) [Concomitant]
  14. PAMIDRONATE (PAMIDRONATE DISODIUM) (UNKNOWN) [Concomitant]

REACTIONS (1)
  - Hypertension [None]
